FAERS Safety Report 7583354-7 (Version None)
Quarter: 2011Q2

REPORT INFORMATION
  Report Type: 
  Country: None (occurrence: None)
  Receive Date: 20110623
  Receipt Date: 20110616
  Transmission Date: 20111010
  Serious: Yes (Other)
  Sender: FDA-Public Use
  Company Number: 2011SP028251

PATIENT
  Age: 42 Year
  Sex: Female

DRUGS (2)
  1. SAPHRIS [Suspect]
     Indication: ENERGY INCREASED
     Dosage: ; SL
     Route: 060
     Dates: start: 20110101, end: 20110602
  2. SAPHRIS [Suspect]
     Indication: AGITATION
     Dosage: ; SL
     Route: 060
     Dates: start: 20110101, end: 20110602

REACTIONS (4)
  - MEMORY IMPAIRMENT [None]
  - DYSARTHRIA [None]
  - OFF LABEL USE [None]
  - TREATMENT NONCOMPLIANCE [None]
